FAERS Safety Report 15743766 (Version 1)
Quarter: 2018Q4

REPORT INFORMATION
  Report Type: Report from Study
  Country: US (occurrence: US)
  Receive Date: 20181220
  Receipt Date: 20181220
  Transmission Date: 20190205
  Serious: Yes (Hospitalization, Other)
  Sender: FDA-Public Use
  Company Number: US-BRISTOL-MYERS SQUIBB COMPANY-BMS-2018-116732

PATIENT
  Sex: Male

DRUGS (2)
  1. NIVOLUMAB [Suspect]
     Active Substance: NIVOLUMAB
     Indication: MALIGNANT MELANOMA
     Dosage: UNK
     Route: 042
     Dates: end: 20181009
  2. IPILIMUMAB [Suspect]
     Active Substance: IPILIMUMAB
     Indication: MALIGNANT MELANOMA
     Route: 065

REACTIONS (17)
  - Pruritus [Recovered/Resolved]
  - Cough [Unknown]
  - Autoimmune disorder [Unknown]
  - Chest pain [Recovered/Resolved]
  - Insomnia [Unknown]
  - Colitis [Unknown]
  - Skin disorder [Unknown]
  - Nasopharyngitis [Unknown]
  - Hypothalamo-pituitary disorder [Unknown]
  - Thyroid disorder [Unknown]
  - Infusion related reaction [Unknown]
  - Nausea [Unknown]
  - Lipase increased [Unknown]
  - Vomiting [Unknown]
  - Duodenitis [Unknown]
  - Anger [Unknown]
  - Amylase increased [Unknown]
